FAERS Safety Report 19853600 (Version 1)
Quarter: 2021Q3

REPORT INFORMATION
  Report Type: Spontaneous
  Country: US (occurrence: US)
  Receive Date: 20210919
  Receipt Date: 20210919
  Transmission Date: 20211014
  Serious: No
  Sender: FDA-Public Use
  Company Number: US-ELI_LILLY_AND_COMPANY-US202109005984

PATIENT
  Age: 71 Year
  Sex: Male

DRUGS (5)
  1. TRULICITY [Suspect]
     Active Substance: DULAGLUTIDE
     Indication: PRODUCT USED FOR UNKNOWN INDICATION
     Dosage: 1.5 MG, UNKNOWN
     Route: 065
     Dates: start: 202103, end: 202108
  2. OZEMPIC [Concomitant]
     Active Substance: SEMAGLUTIDE
     Indication: PRODUCT USED FOR UNKNOWN INDICATION
  3. TRULICITY [Suspect]
     Active Substance: DULAGLUTIDE
     Dosage: 4.5 MG, UNKNOWN
     Route: 065
     Dates: start: 202108
  4. JARDIANCE [Concomitant]
     Active Substance: EMPAGLIFLOZIN
     Indication: PRODUCT USED FOR UNKNOWN INDICATION
  5. METFORMIN [Concomitant]
     Active Substance: METFORMIN HYDROCHLORIDE
     Indication: PRODUCT USED FOR UNKNOWN INDICATION

REACTIONS (11)
  - Blood glucose increased [Unknown]
  - Quality of life decreased [Unknown]
  - Abdominal discomfort [Unknown]
  - Malaise [Unknown]
  - Drug ineffective [Unknown]
  - Sleep disorder due to a general medical condition [Unknown]
  - Back pain [Unknown]
  - Vomiting [Unknown]
  - Abdominal pain upper [Unknown]
  - Eructation [Unknown]
  - Flatulence [Unknown]

NARRATIVE: CASE EVENT DATE: 202108
